FAERS Safety Report 10142977 (Version 1)
Quarter: 2014Q2

REPORT INFORMATION
  Report Type: Spontaneous
  Country: GB (occurrence: None)
  Receive Date: 20140428
  Receipt Date: 20140428
  Transmission Date: 20141212
  Serious: Yes (Other)
  Sender: FDA-Public Use
  Company Number: AUR-APL-2014-04866

PATIENT
  Age: 64 Year
  Sex: Male
  Weight: 73.02 kg

DRUGS (5)
  1. AMOXICILLIN (AMOXICILLIN) [Suspect]
     Indication: PRODUCT USED FOR UNKNOWN INDICATION
     Dates: start: 20140310
  2. AMITRIPTYLINE (AMITRIPTYLINE) [Concomitant]
  3. CALCICHEW D3 (LEKOVIT CA) [Concomitant]
  4. CAPASAL (CAPASAL) [Concomitant]
  5. CARMELLOSE (CARMELLOSE) [Concomitant]

REACTIONS (3)
  - Syncope [None]
  - Dizziness [None]
  - Balance disorder [None]
